FAERS Safety Report 15644828 (Version 2)
Quarter: 2018Q4

REPORT INFORMATION
  Report Type: Spontaneous
  Country: US (occurrence: US)
  Receive Date: 20181121
  Receipt Date: 20181227
  Transmission Date: 20190205
  Serious: Yes (Hospitalization, Other)
  Sender: FDA-Public Use
  Company Number: US-TARO-2018TAR00807

PATIENT
  Sex: Female
  Weight: 69.39 kg

DRUGS (2)
  1. CARBAMAZEPINE TABLETS CHEWABLE USP 100MG [Suspect]
     Active Substance: CARBAMAZEPINE
     Dosage: 100 MG, 5X/DAY
     Route: 048
     Dates: start: 2016, end: 201803
  2. CARBAMAZEPINE TABLETS CHEWABLE USP 100MG [Suspect]
     Active Substance: CARBAMAZEPINE
     Indication: TRIGEMINAL NEURALGIA
     Dosage: 200 MG, 5X/DAY
     Route: 048
     Dates: start: 2016, end: 2016

REACTIONS (12)
  - Anaemia [Recovering/Resolving]
  - Leukaemia [Unknown]
  - Thrombocytopenia [Not Recovered/Not Resolved]
  - Somnolence [Recovered/Resolved]
  - Agranulocytosis [Not Recovered/Not Resolved]
  - Heart rate increased [Unknown]
  - Inappropriate schedule of product administration [Recovered/Resolved]
  - Aplastic anaemia [Not Recovered/Not Resolved]
  - Cytopenia [Unknown]
  - Neutropenia [Recovered/Resolved]
  - Myelodysplastic syndrome [Unknown]
  - Skin discolouration [Not Recovered/Not Resolved]

NARRATIVE: CASE EVENT DATE: 2016
